FAERS Safety Report 8531726 (Version 2)
Quarter: 2012Q4

REPORT INFORMATION
  Report Type: 
  Country: US (occurrence: US)
  Receive Date: 20120426
  Receipt Date: 20120907
  Transmission Date: 20130627
  Serious: Yes (Hospitalization, Other)
  Sender: FDA-Public Use
  Company Number: US-BAYER-2012-039074

PATIENT
  Age: 50 Year
  Sex: Female
  Weight: 90.7 kg

DRUGS (20)
  1. YASMIN [Suspect]
     Indication: PREMENSTRUAL SYNDROME
     Dosage: UNK
     Dates: start: 200611, end: 2009
  2. YASMIN [Suspect]
     Indication: PREMENSTRUAL SYNDROME
  3. YASMIN [Suspect]
     Indication: MENSTRUAL CYCLE MANAGEMENT
  4. YASMIN [Suspect]
     Indication: DYSMENORRHOEA
  5. OCELLA [Suspect]
     Indication: PREMENSTRUAL SYNDROME
     Dosage: UNK
     Dates: start: 2009, end: 2009
  6. OCELLA [Suspect]
     Indication: PREMENSTRUAL SYNDROME
  7. OCELLA [Suspect]
     Indication: MENSTRUAL CYCLE MANAGEMENT
  8. OCELLA [Suspect]
     Indication: DYSMENORRHOEA
  9. LISINOPRIL [Concomitant]
     Dosage: 20 mg, UNK
     Route: 048
  10. LEVOTHYROXINE [Concomitant]
     Dosage: 100 mcg, UNK
     Route: 048
  11. EXCEDRIN [ACETYLSALICYLIC ACID,CAFFEINE,PARACETAMOL] [Concomitant]
     Dosage: UNK
  12. TRIGONELLA FOENUM-GRAECUM [Concomitant]
     Dosage: UNK
  13. ANTIBIOTICS [Concomitant]
     Dosage: UNK
  14. COLACE [Concomitant]
     Dosage: UNK
  15. FOLIC ACID [Concomitant]
     Dosage: UNK
  16. ASPIRIN [Concomitant]
     Dosage: 81 mg, UNK
     Route: 048
  17. OSCAL ULTRA [Concomitant]
     Dosage: UNK
  18. VITAMIN B12 [Concomitant]
     Dosage: 1000 mcg, UNK
     Route: 048
  19. VITAMIN B6 [Concomitant]
     Dosage: UNK
  20. VITAMIN D [Concomitant]
     Dosage: UNK

REACTIONS (9)
  - Gallbladder disorder [None]
  - Cholecystitis chronic [None]
  - Hiatus hernia [None]
  - Injury [None]
  - Pain [None]
  - General physical health deterioration [None]
  - Anxiety [None]
  - Emotional distress [None]
  - Abdominal pain [None]
